FAERS Safety Report 7619135-5 (Version None)
Quarter: 2011Q3

REPORT INFORMATION
  Report Type: 
  Country: None (occurrence: None)
  Receive Date: 20110718
  Receipt Date: 20110707
  Transmission Date: 20111222
  Serious: Yes (Hospitalization)
  Sender: FDA-Public Use
  Company Number: FR-ASTRAZENECA-2011SE41184

PATIENT
  Age: 1370 Day
  Sex: Female
  Weight: 16.5 kg

DRUGS (1)
  1. EMLA [Suspect]
     Indication: APPLICATION SITE ANAESTHESIA
     Route: 003
     Dates: start: 20110624, end: 20110624

REACTIONS (4)
  - MEDICATION ERROR [None]
  - METHAEMOGLOBINAEMIA [None]
  - INCORRECT DOSE ADMINISTERED [None]
  - CONVULSION [None]
